FAERS Safety Report 15738957 (Version 1)
Quarter: 2018Q4

REPORT INFORMATION
  Report Type: Report from Study
  Country: US (occurrence: US)
  Receive Date: 20181219
  Receipt Date: 20181219
  Transmission Date: 20190205
  Serious: Yes (Hospitalization, Other)
  Sender: FDA-Public Use
  Company Number: US-BAYER-2018-237357

PATIENT
  Sex: Female
  Weight: 70.75 kg

DRUGS (4)
  1. TYVASO [Concomitant]
     Active Substance: TREPROSTINIL
     Dosage: UNK
  2. COUMADIN [Concomitant]
     Active Substance: WARFARIN SODIUM
     Dosage: UNK
  3. ADEMPAS [Suspect]
     Active Substance: RIOCIGUAT
     Indication: PULMONARY ARTERIAL HYPERTENSION
     Dosage: 2.5 MG, TID
     Route: 048
  4. ADEMPAS [Suspect]
     Active Substance: RIOCIGUAT
     Indication: PULMONARY ARTERIAL HYPERTENSION
     Dosage: UNK
     Dates: start: 20171120

REACTIONS (8)
  - Cellulitis [Unknown]
  - Dizziness [Unknown]
  - Fall [Unknown]
  - Blood pressure decreased [Unknown]
  - Fall [Unknown]
  - Bursa injury [Unknown]
  - Blood pressure systolic decreased [Unknown]
  - Nausea [Unknown]

NARRATIVE: CASE EVENT DATE: 2018
